FAERS Safety Report 9206022 (Version 1)
Quarter: 2013Q2

REPORT INFORMATION
  Report Type: Spontaneous
  Country: US (occurrence: None)
  Receive Date: 20130401
  Receipt Date: 20130401
  Transmission Date: 20140414
  Serious: No
  Sender: FDA-Public Use
  Company Number: None

PATIENT
  Age: 59 Year
  Sex: Male
  Weight: 83 kg

DRUGS (1)
  1. LINEZOLID [Suspect]
     Route: 048
     Dates: start: 20121030, end: 20121202

REACTIONS (2)
  - Thrombocytopenia [None]
  - Anaemia [None]
